FAERS Safety Report 7194361-0 (Version None)
Quarter: 2010Q4

REPORT INFORMATION
  Report Type: 
  Country: None (occurrence: None)
  Receive Date: 20101223
  Receipt Date: 20101216
  Transmission Date: 20110411
  Serious: Yes (Hospitalization, Other)
  Sender: FDA-Public Use
  Company Number: GB-ASTRAZENECA-2003UW06401

PATIENT
  Age: 79 Year
  Sex: Female
  Weight: 38.1 kg

DRUGS (4)
  1. ZESTRIL [Suspect]
     Indication: HYPERTENSION
     Route: 048
     Dates: start: 20020501
  2. ZESTRIL [Suspect]
     Route: 048
  3. BACTRIM [Suspect]
     Dates: start: 20090601
  4. CARDIZEM [Concomitant]

REACTIONS (13)
  - BLOOD PRESSURE INCREASED [None]
  - BODY HEIGHT DECREASED [None]
  - BUNDLE BRANCH BLOCK RIGHT [None]
  - COLONIC POLYP [None]
  - DYSPHAGIA [None]
  - GALLBLADDER OPERATION [None]
  - HEADACHE [None]
  - HELICOBACTER INFECTION [None]
  - NAUSEA [None]
  - PNEUMONIA KLEBSIELLA [None]
  - SINUS DISORDER [None]
  - SUPRAVENTRICULAR EXTRASYSTOLES [None]
  - TACHYCARDIA [None]
